FAERS Safety Report 6668302-6 (Version None)
Quarter: 2010Q2

REPORT INFORMATION
  Report Type: 
  Country: None (occurrence: None)
  Receive Date: 20100406
  Receipt Date: 20100329
  Transmission Date: 20101027
  Serious: Yes (Death, Other)
  Sender: FDA-Public Use
  Company Number: US-PURDUE-USA-2010-0042687

PATIENT
  Sex: Male
  Weight: 68.481 kg

DRUGS (5)
  1. OXYCONTIN [Suspect]
     Indication: SPONDYLOPATHY TRAUMATIC
     Dosage: 80 MG, TID
     Route: 048
     Dates: start: 20090612
  2. ROXICODONE [Concomitant]
     Indication: BREAKTHROUGH PAIN
     Dosage: 30 MG, TID PRN
     Route: 048
     Dates: start: 20070629
  3. XANAX [Concomitant]
     Indication: ANXIETY
     Dosage: 2 MG, TID PRN
     Route: 048
     Dates: start: 20071019
  4. MOTRIN [Concomitant]
     Indication: BACK PAIN
     Dosage: 800 MG, TID
     Route: 048
     Dates: start: 20061215
  5. LEXAPRO [Concomitant]
     Indication: ANXIETY
     Dosage: 10 MG, DAILY
     Route: 048
     Dates: start: 20090807

REACTIONS (3)
  - COMPLETED SUICIDE [None]
  - DRUG ABUSE [None]
  - GUN SHOT WOUND [None]
